FAERS Safety Report 5112578-3 (Version None)
Quarter: 2006Q3

REPORT INFORMATION
  Report Type: 
  Country: None (occurrence: None)
  Receive Date: 20060922
  Receipt Date: 20060919
  Transmission Date: 20061208
  Serious: Yes (Hospitalization)
  Sender: FDA-Public Use
  Company Number: ES-AVENTIS-200619722GDDC

PATIENT
  Age: 65 Year
  Sex: Female

DRUGS (6)
  1. EUGLUCON [Suspect]
     Indication: DIABETES MELLITUS
     Route: 048
     Dates: end: 20020401
  2. DIANBEN [Suspect]
     Indication: DIABETES MELLITUS
     Dates: end: 20020401
  3. DONEKA PLUS [Concomitant]
  4. ADIRO [Concomitant]
  5. EMCONCOR [Concomitant]
  6. PANTOK [Concomitant]

REACTIONS (2)
  - ACIDOSIS [None]
  - HYPOGLYCAEMIA [None]
